FAERS Safety Report 4856813-5 (Version None)
Quarter: 2005Q4

REPORT INFORMATION
  Report Type: 
  Country: None (occurrence: None)
  Receive Date: 20051219
  Receipt Date: 20050126
  Transmission Date: 20060501
  Serious: No
  Sender: FDA-Public Use
  Company Number: US-GLAXOSMITHKLINE-A0542370A

PATIENT
  Age: 30 Year
  Sex: Male

DRUGS (3)
  1. NICODERM CQ [Suspect]
     Dates: start: 20041127
  2. NICODERM CQ [Suspect]
     Dates: start: 20041127
  3. NICODERM CQ [Suspect]
     Dates: start: 20041127

REACTIONS (1)
  - NAUSEA [None]
